FAERS Safety Report 7587181-6 (Version None)
Quarter: 2011Q3

REPORT INFORMATION
  Report Type: 
  Country: None (occurrence: None)
  Receive Date: 20110701
  Receipt Date: 20110628
  Transmission Date: 20111222
  Serious: Yes (Death, Other)
  Sender: FDA-Public Use
  Company Number: IT-ELI_LILLY_AND_COMPANY-IT201106008596

PATIENT
  Age: 73 Year
  Sex: Male

DRUGS (2)
  1. GEMCITABINE HYDROCHLORIDE [Suspect]
     Dosage: 1000 MG/M2, UNKNOWN
     Route: 065
  2. OXALIPLATIN [Concomitant]
     Dosage: 100 MG/M2, UNKNOWN
     Route: 065

REACTIONS (3)
  - DEATH [None]
  - NEUROTOXICITY [None]
  - THROMBOCYTOPENIA [None]
